FAERS Safety Report 18848048 (Version 1)
Quarter: 2021Q1

REPORT INFORMATION
  Report Type: Spontaneous
  Country: US (occurrence: US)
  Receive Date: 20210204
  Receipt Date: 20210204
  Transmission Date: 20210419
  Serious: No
  Sender: FDA-Public Use
  Company Number: US-GLAXOSMITHKLINE-USCH2021002765

PATIENT
  Sex: Female

DRUGS (12)
  1. ADVIL [Suspect]
     Active Substance: IBUPROFEN
     Indication: PAIN
     Dosage: UNK
  2. ADVIL [Suspect]
     Active Substance: IBUPROFEN
     Indication: NASAL CONGESTION
  3. MUCINEX FAST?MAX NIGHT TIME COLD AND FLU (ACETAMINOPHEN\DIPHENHYDR\PHENYLEP) [Suspect]
     Active Substance: ACETAMINOPHEN\DIPHENHYDRAMINE HYDROCHLORIDE\PHENYLEPHRINE HYDROCHLORIDE
     Indication: OROPHARYNGEAL PAIN
     Dosage: UNK
  4. HALLS LOZENGE [Suspect]
     Active Substance: MENTHOL
     Indication: PAIN
  5. HALLS LOZENGE [Suspect]
     Active Substance: MENTHOL
     Indication: NASAL CONGESTION
  6. HALLS LOZENGE [Suspect]
     Active Substance: MENTHOL
     Indication: OROPHARYNGEAL PAIN
     Dosage: UNK
  7. ADVIL [Suspect]
     Active Substance: IBUPROFEN
     Indication: FLUSHING
  8. HALLS LOZENGE [Suspect]
     Active Substance: MENTHOL
     Indication: FLUSHING
  9. MUCINEX FAST?MAX NIGHT TIME COLD AND FLU (ACETAMINOPHEN\DIPHENHYDR\PHENYLEP) [Suspect]
     Active Substance: ACETAMINOPHEN\DIPHENHYDRAMINE HYDROCHLORIDE\PHENYLEPHRINE HYDROCHLORIDE
     Indication: NASAL CONGESTION
  10. MUCINEX FAST?MAX NIGHT TIME COLD AND FLU (ACETAMINOPHEN\DIPHENHYDR\PHENYLEP) [Suspect]
     Active Substance: ACETAMINOPHEN\DIPHENHYDRAMINE HYDROCHLORIDE\PHENYLEPHRINE HYDROCHLORIDE
     Indication: FLUSHING
  11. ADVIL [Suspect]
     Active Substance: IBUPROFEN
     Indication: OROPHARYNGEAL PAIN
  12. MUCINEX FAST?MAX NIGHT TIME COLD AND FLU (ACETAMINOPHEN\DIPHENHYDR\PHENYLEP) [Suspect]
     Active Substance: ACETAMINOPHEN\DIPHENHYDRAMINE HYDROCHLORIDE\PHENYLEPHRINE HYDROCHLORIDE
     Indication: PAIN

REACTIONS (1)
  - Drug ineffective [Unknown]
